FAERS Safety Report 8227217-2 (Version None)
Quarter: 2012Q1

REPORT INFORMATION
  Report Type: 
  Country: None (occurrence: None)
  Receive Date: 20120322
  Receipt Date: 20120313
  Transmission Date: 20120608
  Serious: Yes (Other)
  Sender: FDA-Public Use
  Company Number: IT-JNJFOC-20120308010

PATIENT
  Sex: Female

DRUGS (2)
  1. KETOCONAZOLE [Suspect]
     Indication: PITUITARY-DEPENDENT CUSHING'S SYNDROME
     Route: 065
  2. RADIATION THERAPY NOS [Suspect]
     Indication: PITUITARY-DEPENDENT CUSHING'S SYNDROME
     Route: 065

REACTIONS (2)
  - ABORTION SPONTANEOUS [None]
  - MATERNAL EXPOSURE DURING PREGNANCY [None]
